FAERS Safety Report 6854570-4 (Version None)
Quarter: 2010Q3

REPORT INFORMATION
  Report Type: 
  Country: None (occurrence: None)
  Receive Date: 20100717
  Receipt Date: 20080107
  Transmission Date: 20110219
  Serious: No
  Sender: FDA-Public Use
  Company Number: US-PFIZER INC-2008002079

PATIENT
  Sex: Female
  Weight: 90.454 kg

DRUGS (6)
  1. CHANTIX [Suspect]
     Indication: SMOKING CESSATION THERAPY
     Dates: start: 20080102
  2. METFORMIN HCL [Concomitant]
  3. AMARYL [Concomitant]
  4. PRINZIDE [Concomitant]
  5. ACETYLSALICYLIC ACID [Concomitant]
  6. VYTORIN [Concomitant]

REACTIONS (3)
  - ABNORMAL DREAMS [None]
  - DRUG INEFFECTIVE [None]
  - TOBACCO USER [None]
